FAERS Safety Report 24303166 (Version 1)
Quarter: 2024Q3

REPORT INFORMATION
  Report Type: Spontaneous
  Country: US (occurrence: US)
  Receive Date: 20240910
  Receipt Date: 20240910
  Transmission Date: 20241016
  Serious: Yes (Other)
  Sender: UCB
  Company Number: US-UCBSA-2024046176

PATIENT
  Sex: Female

DRUGS (1)
  1. CIMZIA [Suspect]
     Active Substance: CERTOLIZUMAB PEGOL
     Indication: Product used for unknown indication
     Dosage: UNK
     Route: 058

REACTIONS (8)
  - Cardiac failure [Unknown]
  - Hepatic cirrhosis [Unknown]
  - Spinal fracture [Unknown]
  - Paraplegia [Unknown]
  - Fatigue [Unknown]
  - Pain [Unknown]
  - Sciatica [Unknown]
  - Drug ineffective [Unknown]
